FAERS Safety Report 11590726 (Version 3)
Quarter: 2016Q1

REPORT INFORMATION
  Report Type: Report from Study
  Country: US (occurrence: US)
  Receive Date: 20151002
  Receipt Date: 20160226
  Transmission Date: 20160525
  Serious: Yes (Death, Hospitalization, Other)
  Sender: FDA-Public Use
  Company Number: US-ACTELION-A-NJ2015-121505

PATIENT
  Age: 74 Year
  Sex: Female

DRUGS (2)
  1. MACITENTAN [Suspect]
     Active Substance: MACITENTAN
     Indication: PULMONARY ARTERIAL HYPERTENSION
     Dosage: 10 MG, QD
     Route: 048
     Dates: start: 20150320
  2. MACITENTAN [Suspect]
     Active Substance: MACITENTAN
     Dosage: UNK
     Route: 048

REACTIONS (6)
  - Peripheral swelling [Unknown]
  - Pruritus [Recovering/Resolving]
  - Death [Fatal]
  - Peritoneal dialysis [Unknown]
  - Fluid retention [Unknown]
  - Oedema [Unknown]

NARRATIVE: CASE EVENT DATE: 201503
